FAERS Safety Report 12138188 (Version 1)
Quarter: 2016Q1

REPORT INFORMATION
  Report Type: Report from Study
  Country: RO (occurrence: RO)
  Receive Date: 20160302
  Receipt Date: 20160302
  Transmission Date: 20160526
  Serious: Yes (Death, Hospitalization, Other)
  Sender: FDA-Public Use
  Company Number: RO-KADMON PHARMACEUTICALS, LLC-KAD201602-000725

PATIENT
  Age: 55 Year
  Sex: Female
  Weight: 65 kg

DRUGS (6)
  1. RIBAVIRIN 600 MG [Suspect]
     Active Substance: RIBAVIRIN
     Indication: HEPATIC CIRRHOSIS
     Dosage: FILM COATED TABLET
     Route: 048
     Dates: start: 20160208, end: 20160221
  2. RIBAVIRIN 600 MG [Suspect]
     Active Substance: RIBAVIRIN
     Indication: HEPATITIS C
     Dosage: FILM COATED TABLET
     Route: 048
     Dates: start: 20160208, end: 20160221
  3. VIEKIRAX [Suspect]
     Active Substance: OMBITASVIR\PARITAPREVIR\RITONAVIR
     Indication: HEPATIC CIRRHOSIS
  4. EXVIERA 250 MG [Suspect]
     Active Substance: DASABUVIR
     Indication: HEPATITIS C
     Dosage: FILM COATED TABLET
     Route: 048
     Dates: start: 20160208, end: 20160221
  5. EXVIERA 250 MG [Suspect]
     Active Substance: DASABUVIR
     Indication: HEPATIC CIRRHOSIS
  6. VIEKIRAX [Suspect]
     Active Substance: OMBITASVIR\PARITAPREVIR\RITONAVIR
     Indication: HEPATITIS C
     Dosage: FILM COATED TABLET
     Route: 048
     Dates: start: 20160208, end: 20160221

REACTIONS (9)
  - Back pain [Unknown]
  - Varicose ulceration [Unknown]
  - Cardio-respiratory arrest [Unknown]
  - Pyrexia [Unknown]
  - Arrhythmia [Fatal]
  - Nausea [Unknown]
  - Malaise [Unknown]
  - Thrombophlebitis [Unknown]
  - Urinary tract infection [Unknown]

NARRATIVE: CASE EVENT DATE: 20160213
